FAERS Safety Report 8179525-1 (Version None)
Quarter: 2012Q1

REPORT INFORMATION
  Report Type: 
  Country: None (occurrence: None)
  Receive Date: 20120229
  Receipt Date: 20120217
  Transmission Date: 20120608
  Serious: Yes (Hospitalization, Disabling, Other)
  Sender: FDA-Public Use
  Company Number: 2009AL001153

PATIENT
  Age: 32 Year
  Sex: Male
  Weight: 113.8529 kg

DRUGS (32)
  1. ADVAIR DISKUS 100/50 [Concomitant]
  2. XANAX [Concomitant]
  3. DIAMOX SRC [Concomitant]
  4. COLACE [Concomitant]
  5. ASPIRIN [Concomitant]
  6. CLONAZEPAM [Concomitant]
  7. VALIUM [Concomitant]
  8. COREG [Concomitant]
  9. ZOLOFT [Concomitant]
  10. POTASSIUM CHLORIDE [Concomitant]
  11. ALDACTONE [Concomitant]
  12. PAXIL [Concomitant]
  13. CITALOPRAM HYDROBROMIDE [Concomitant]
  14. ZITHROMAX [Concomitant]
  15. ALBUTEROL [Concomitant]
  16. DIPHENHYDRAMINE HCL [Concomitant]
  17. TOPROL-XL [Concomitant]
  18. ELAVIL [Concomitant]
  19. LISINOPRIL [Concomitant]
  20. TYLENOL [Concomitant]
  21. ALPRAZOLAM [Concomitant]
  22. ZONISAMIDE [Concomitant]
  23. ALLOPURINOL [Concomitant]
  24. PROTONIX [Concomitant]
  25. COLCHICINE [Concomitant]
  26. KEPPRA [Concomitant]
  27. DEPAKOTE [Concomitant]
  28. XYLOPRIL [Concomitant]
  29. ZONEGRAN [Concomitant]
  30. MAGNESIUM HYDROXIDE TAB [Concomitant]
  31. LAMICTAL [Concomitant]
  32. DIGOXIN [Suspect]
     Indication: PRODUCT USED FOR UNKNOWN INDICATION
     Dosage: 0.25 MG, QD, PO
     Route: 048
     Dates: start: 20070727, end: 20080326

REACTIONS (47)
  - TRICUSPID VALVE INCOMPETENCE [None]
  - FEELING ABNORMAL [None]
  - MUSCLE SPASMS [None]
  - DYSPHAGIA [None]
  - MALAISE [None]
  - PARTNER STRESS [None]
  - ATELECTASIS [None]
  - SINUS TACHYCARDIA [None]
  - SLEEP APNOEA SYNDROME [None]
  - LOWER RESPIRATORY TRACT INFECTION [None]
  - PRESYNCOPE [None]
  - CHOKING SENSATION [None]
  - LEFT ATRIAL DILATATION [None]
  - CARDIOPULMONARY FAILURE [None]
  - VIRAL CARDIOMYOPATHY [None]
  - DEPRESSION [None]
  - CARDIOMYOPATHY [None]
  - SINUS ARRHYTHMIA [None]
  - MUSCULAR WEAKNESS [None]
  - CARPAL TUNNEL SYNDROME [None]
  - PARAESTHESIA [None]
  - EPILEPSY [None]
  - PRODUCTIVE COUGH [None]
  - ANHEDONIA [None]
  - SUICIDAL IDEATION [None]
  - MUSCLE TIGHTNESS [None]
  - DYSARTHRIA [None]
  - DYSPNOEA [None]
  - DIZZINESS [None]
  - LOSS OF EMPLOYMENT [None]
  - URTICARIA [None]
  - ASTHMA [None]
  - CARDIAC FAILURE CONGESTIVE [None]
  - PALPITATIONS [None]
  - TEARFULNESS [None]
  - ASTHENIA [None]
  - PARTIAL SEIZURES [None]
  - BRONCHITIS [None]
  - MITRAL VALVE INCOMPETENCE [None]
  - NERVOUS SYSTEM DISORDER [None]
  - HYPERHIDROSIS [None]
  - ANXIETY [None]
  - TREMOR [None]
  - FALL [None]
  - CHEST DISCOMFORT [None]
  - VIRAL MYOCARDITIS [None]
  - SOMATOFORM DISORDER [None]
